FAERS Safety Report 7297846-1 (Version None)
Quarter: 2011Q1

REPORT INFORMATION
  Report Type: 
  Country: None (occurrence: None)
  Receive Date: 20110217
  Receipt Date: 20101102
  Transmission Date: 20110831
  Serious: No
  Sender: FDA-Public Use
  Company Number: US-KINGPHARMUSA00001-K201001348

PATIENT
  Age: 81 Year
  Sex: Female
  Weight: 58.05 kg

DRUGS (1)
  1. FLECTOR [Suspect]
     Indication: MUSCULOSKELETAL CHEST PAIN
     Dosage: 1 PATCH, 3-4H
     Route: 061
     Dates: start: 20101031, end: 20101031

REACTIONS (1)
  - DRUG INEFFECTIVE [None]
